FAERS Safety Report 22303450 (Version 2)
Quarter: 2023Q2

REPORT INFORMATION
  Report Type: Report from Study
  Country: CH (occurrence: None)
  Receive Date: 20230510
  Receipt Date: 20230512
  Transmission Date: 20230721
  Serious: Yes (Hospitalization)
  Sender: FDA-Public Use
  Company Number: CH-ROCHE-3346586

PATIENT
  Age: 63 Year
  Sex: Male

DRUGS (2)
  1. OBINUTUZUMAB [Suspect]
     Active Substance: OBINUTUZUMAB
     Indication: Chronic lymphocytic leukaemia
     Dosage: MOST RECENT DOSE RECEIVED ON 24/JAN/2023
     Route: 042
     Dates: start: 20220906
  2. VENETOCLAX [Suspect]
     Active Substance: VENETOCLAX
     Indication: Chronic lymphocytic leukaemia
     Dosage: MOST RECENT DOSE RECEIVED ON 03/MAY/2023
     Route: 048
     Dates: start: 20220926

REACTIONS (3)
  - Urinary tract infection [Unknown]
  - Prostatitis [Recovered/Resolved]
  - Bacterial prostatitis [Recovered/Resolved]

NARRATIVE: CASE EVENT DATE: 20230504
